FAERS Safety Report 6768160-5 (Version None)
Quarter: 2010Q2

REPORT INFORMATION
  Report Type: 
  Country: None (occurrence: None)
  Receive Date: 20100614
  Receipt Date: 20100601
  Transmission Date: 20101027
  Serious: Yes (Hospitalization, Other)
  Sender: FDA-Public Use
  Company Number: US-SANOFI-AVENTIS-2010SA032510

PATIENT
  Age: 81 Year
  Sex: Female
  Weight: 81.6 kg

DRUGS (22)
  1. LOVENOX [Suspect]
     Indication: ANTICOAGULANT THERAPY
     Route: 058
     Dates: start: 20080501, end: 20080501
  2. METFORMIN HCL [Concomitant]
  3. HYZAAR [Concomitant]
  4. GLYBURIDE [Concomitant]
  5. CARDIZEM LA [Concomitant]
  6. NOVOLOG [Concomitant]
  7. LANTUS [Concomitant]
  8. AVAPRO [Concomitant]
  9. MAGNESIUM OXIDE [Concomitant]
  10. TYLENOL [Concomitant]
  11. RESTORIL [Concomitant]
  12. PREDNISONE [Concomitant]
  13. VENTOLIN [Concomitant]
  14. ASPIRIN [Concomitant]
  15. ZITHROMAX [Concomitant]
  16. ROCEPHIN [Concomitant]
  17. SOLU-MEDROL [Concomitant]
  18. K-TAB [Concomitant]
  19. VANCOMYCIN HCL [Concomitant]
  20. MAALOX PLUS EXTRA STRENGTH [Concomitant]
  21. PROTONIX [Concomitant]
  22. VANTIN [Concomitant]

REACTIONS (15)
  - ABDOMINAL PAIN [None]
  - ABDOMINAL WALL HAEMATOMA [None]
  - ANAEMIA [None]
  - ASTHENIA [None]
  - CONVULSION [None]
  - DYSPNOEA [None]
  - HEADACHE [None]
  - HYPERHIDROSIS [None]
  - HYPONATRAEMIA [None]
  - NAUSEA [None]
  - ORGAN FAILURE [None]
  - PNEUMONIA [None]
  - SYNCOPE [None]
  - THROMBOSIS [None]
  - VOMITING [None]
